FAERS Safety Report 10861269 (Version 1)
Quarter: 2015Q1

REPORT INFORMATION
  Report Type: Spontaneous
  Country: US (occurrence: US)
  Receive Date: 20150224
  Receipt Date: 20150224
  Transmission Date: 20150721
  Serious: Yes (Death)
  Sender: FDA-Public Use
  Company Number: US-BANPHARM-20153481

PATIENT
  Age: 49 Year
  Sex: Female

DRUGS (4)
  1. ZONISAMIDE UNKNOWN PRODUCT [Suspect]
     Active Substance: ZONISAMIDE
  2. COCAINE [Suspect]
     Active Substance: COCAINE
  3. MARIJUANA [Suspect]
     Active Substance: CANNABIS SATIVA SUBSP. INDICA TOP
  4. FENTANYL. [Suspect]
     Active Substance: FENTANYL

REACTIONS (1)
  - Drug abuse [Fatal]
